FAERS Safety Report 6092991-0 (Version None)
Quarter: 2009Q1

REPORT INFORMATION
  Report Type: 
  Country: None (occurrence: None)
  Receive Date: 20090224
  Receipt Date: 20090210
  Transmission Date: 20090719
  Serious: Yes (Hospitalization)
  Sender: FDA-Public Use
  Company Number: 208002990

PATIENT
  Sex: Male
  Weight: 58.0604 kg

DRUGS (8)
  1. ERLOTINIB            (ERLOTINIB) [Suspect]
     Indication: NON-SMALL CELL LUNG CANCER
     Dosage: 150 MG, QD, ORAL
     Route: 048
     Dates: start: 20080922, end: 20081113
  2. SORAFENIB/ PLACEBO [Suspect]
     Indication: NON-SMALL CELL LUNG CANCER
     Dosage: 800 MG, QD, ORAL
     Route: 048
     Dates: start: 20080922, end: 20081113
  3. COUMADIN [Concomitant]
  4. MORPHINE [Concomitant]
  5. CHLORPROMAZINE [Concomitant]
  6. LASIX [Concomitant]
  7. DURAGESIC-100 [Concomitant]
  8. APIXTRA [Concomitant]

REACTIONS (6)
  - ATELECTASIS [None]
  - HAEMOGLOBIN DECREASED [None]
  - HAEMOPTYSIS [None]
  - HYPOXIA [None]
  - MALIGNANT NEOPLASM PROGRESSION [None]
  - PROTHROMBIN TIME PROLONGED [None]
